FAERS Safety Report 4495703-7 (Version None)
Quarter: 2004Q4

REPORT INFORMATION
  Report Type: 
  Country: None (occurrence: None)
  Receive Date: 20041108
  Receipt Date: 20041004
  Transmission Date: 20050328
  Serious: Yes (Hospitalization)
  Sender: FDA-Public Use
  Company Number: NZ-MERCK-0410NZL00018

PATIENT
  Age: 74 Year
  Sex: Female

DRUGS (12)
  1. VIOXX [Suspect]
     Indication: OSTEOARTHRITIS
     Route: 048
     Dates: start: 20000101, end: 20040401
  2. ASPIRIN [Concomitant]
     Route: 048
  3. GASTROINTESTINAL PREPARATIONS (UNSPECIFIED) [Concomitant]
     Indication: DYSPEPSIA
     Route: 048
     Dates: start: 20040429
  4. BENDROFLUMETHIAZIDE [Concomitant]
     Indication: OEDEMA
     Route: 048
  5. BENDROFLUMETHIAZIDE [Concomitant]
     Indication: HYPERTENSION
     Route: 048
  6. ZOCOR [Concomitant]
     Indication: BLOOD CHOLESTEROL INCREASED
     Route: 048
  7. OMEPRAZOLE [Concomitant]
     Indication: GASTROOESOPHAGEAL REFLUX DISEASE
     Route: 048
  8. CHOLECALCIFEROL [Concomitant]
     Route: 048
  9. ETIDRONATE DISODIUM [Concomitant]
     Route: 048
  10. CALCIUM (UNSPECIFIED) [Concomitant]
     Route: 048
  11. ACETAMINOPHEN [Concomitant]
     Indication: PAIN
     Route: 048
  12. ALLOPURINOL [Concomitant]
     Indication: GOUT
     Route: 048

REACTIONS (2)
  - CEREBROVASCULAR ACCIDENT [None]
  - TRANSIENT ISCHAEMIC ATTACK [None]
